FAERS Safety Report 24006738 (Version 1)
Quarter: 2024Q2

REPORT INFORMATION
  Report Type: Spontaneous
  Country: US (occurrence: US)
  Receive Date: 20240624
  Receipt Date: 20240624
  Transmission Date: 20240715
  Serious: No
  Sender: FDA-Public Use
  Company Number: US-BRISTOL-MYERS SQUIBB COMPANY-2024-094134

PATIENT
  Age: 76 Year
  Sex: Male
  Weight: 78.4 kg

DRUGS (12)
  1. POMALIDOMIDE [Suspect]
     Active Substance: POMALIDOMIDE
     Indication: Plasma cell myeloma
     Route: 048
     Dates: start: 20170208, end: 20170501
  2. POMALIDOMIDE [Suspect]
     Active Substance: POMALIDOMIDE
     Route: 048
     Dates: start: 20170502, end: 20171017
  3. POMALIDOMIDE [Suspect]
     Active Substance: POMALIDOMIDE
     Route: 048
     Dates: start: 20171121, end: 20180919
  4. POMALIDOMIDE [Suspect]
     Active Substance: POMALIDOMIDE
     Route: 048
     Dates: start: 20200710, end: 20200821
  5. POMALIDOMIDE [Suspect]
     Active Substance: POMALIDOMIDE
     Route: 048
     Dates: start: 20200823, end: 20200908
  6. DECADRON [Concomitant]
     Active Substance: DEXAMETHASONE
     Indication: Plasma cell myeloma
     Route: 048
     Dates: start: 20150418, end: 20150910
  7. DECADRON [Concomitant]
     Active Substance: DEXAMETHASONE
     Dosage: WEEKLY
     Route: 048
     Dates: start: 20150916, end: 20151223
  8. DECADRON [Concomitant]
     Active Substance: DEXAMETHASONE
     Route: 048
     Dates: start: 20170130, end: 20180919
  9. DECADRON [Concomitant]
     Active Substance: DEXAMETHASONE
     Route: 048
     Dates: start: 20180920, end: 20181226
  10. DECADRON [Concomitant]
     Active Substance: DEXAMETHASONE
     Route: 048
     Dates: start: 20190101, end: 20200707
  11. DECADRON [Concomitant]
     Active Substance: DEXAMETHASONE
     Route: 048
     Dates: start: 20200710, end: 20200925
  12. KYPROLIS [Concomitant]
     Active Substance: CARFILZOMIB
     Indication: Plasma cell myeloma
     Dosage: DOSE: 20 MG/M^2, FREQUENCY: DAY 1,2,15,16 EVERY 28 DAYS.
     Dates: start: 20170130, end: 20180919

REACTIONS (4)
  - Toxicity to various agents [Unknown]
  - Drug resistance [Unknown]
  - Off label use [Unknown]
  - Skin lesion [Unknown]
